FAERS Safety Report 7592960-5 (Version None)
Quarter: 2011Q3

REPORT INFORMATION
  Report Type: 
  Country: None (occurrence: None)
  Receive Date: 20110706
  Receipt Date: 20110630
  Transmission Date: 20111222
  Serious: Yes (Other)
  Sender: FDA-Public Use
  Company Number: CA-GLAXOSMITHKLINE-A0923878A

PATIENT
  Sex: Male

DRUGS (12)
  1. IMITREX [Suspect]
     Indication: MIGRAINE
     Dosage: 100MG AS REQUIRED
     Route: 048
     Dates: start: 20100101
  2. ASPIRIN [Concomitant]
     Dosage: 80MG PER DAY
     Route: 065
     Dates: start: 20080401
  3. EZETIMIBE [Concomitant]
     Dosage: 10MG PER DAY
     Route: 065
     Dates: start: 20070101
  4. ASAPHEN [Concomitant]
     Indication: ILL-DEFINED DISORDER
  5. AMLODIPINE [Concomitant]
  6. NORVASC [Concomitant]
     Dosage: 2.5MG PER DAY
     Route: 065
     Dates: start: 20080301
  7. IMITREX [Suspect]
     Dosage: 6MG AS REQUIRED
     Route: 058
     Dates: start: 20070101
  8. SYNTHROID [Concomitant]
     Dosage: .05MG PER DAY
     Route: 065
  9. CRESTOR [Concomitant]
     Dosage: 20MG PER DAY
     Route: 065
     Dates: start: 20070101
  10. LOPRESSOR [Concomitant]
     Dosage: 25MG TWICE PER DAY
     Route: 065
     Dates: start: 20080301
  11. LISINOPRIL [Concomitant]
     Dosage: 2.5MG PER DAY
     Route: 065
     Dates: start: 20080301
  12. IMDUR [Concomitant]
     Indication: CARDIAC DISORDER
     Dosage: 60MG PER DAY
     Route: 065

REACTIONS (4)
  - CLUSTER HEADACHE [None]
  - MIGRAINE [None]
  - CARDIAC DISORDER [None]
  - ANGINA PECTORIS [None]
